FAERS Safety Report 14401640 (Version 1)
Quarter: 2018Q1

REPORT INFORMATION
  Report Type: Spontaneous
  Country: US (occurrence: US)
  Receive Date: 20180117
  Receipt Date: 20180117
  Transmission Date: 20180509
  Serious: Yes (Other)
  Sender: FDA-Public Use
  Company Number: US-ROCHE-2054544

PATIENT
  Age: 77 Year
  Sex: Male

DRUGS (6)
  1. VEMURAFENIB. [Suspect]
     Active Substance: VEMURAFENIB
     Dosage: GRADUAL REINSTATEMENT OF THE DOSE
     Route: 065
     Dates: start: 2016
  2. COBIMETINIB. [Suspect]
     Active Substance: COBIMETINIB
     Indication: ANAPLASTIC THYROID CANCER
     Dosage: 3 WEEKS ON TREATMENT AND 1 WEEK OFF TREATMENT
     Route: 065
     Dates: start: 2016
  3. COBIMETINIB. [Suspect]
     Active Substance: COBIMETINIB
     Route: 065
     Dates: start: 2016
  4. COBIMETINIB. [Suspect]
     Active Substance: COBIMETINIB
     Route: 065
     Dates: start: 2016
  5. VEMURAFENIB. [Suspect]
     Active Substance: VEMURAFENIB
     Route: 065
     Dates: start: 2016
  6. VEMURAFENIB. [Suspect]
     Active Substance: VEMURAFENIB
     Indication: ANAPLASTIC THYROID CANCER
     Route: 065
     Dates: start: 2016

REACTIONS (15)
  - Pruritus [Recovered/Resolved]
  - Intentional product use issue [Unknown]
  - Flushing [Recovered/Resolved]
  - Skin exfoliation [Recovered/Resolved]
  - Dermatosis [Recovered/Resolved]
  - Purpura [Recovered/Resolved]
  - Seborrhoeic keratosis [Recovered/Resolved]
  - Eczema [Recovered/Resolved]
  - Off label use [Unknown]
  - Petechiae [Recovered/Resolved]
  - Wound [Unknown]
  - Fatigue [Unknown]
  - Skin papilloma [Recovered/Resolved]
  - Oedema peripheral [Recovered/Resolved]
  - Photosensitivity reaction [Recovered/Resolved]
